FAERS Safety Report 13158791 (Version 2)
Quarter: 2017Q2

REPORT INFORMATION
  Report Type: Spontaneous
  Country: FR (occurrence: FR)
  Receive Date: 20170127
  Receipt Date: 20170427
  Transmission Date: 20170830
  Serious: Yes (Other)
  Sender: FDA-Public Use
  Company Number: FR-ARIAD-2017FR007660

PATIENT

DRUGS (2)
  1. ICLUSIG [Suspect]
     Active Substance: PONATINIB
     Indication: PRODUCT USED FOR UNKNOWN INDICATION
     Dosage: 15 MG, UNK
     Route: 048
  2. ICLUSIG [Suspect]
     Active Substance: PONATINIB
     Dosage: 15 MG, UNK
     Route: 048

REACTIONS (1)
  - Cerebrovascular accident [Unknown]
